FAERS Safety Report 25784805 (Version 2)
Quarter: 2025Q3

REPORT INFORMATION
  Report Type: Report from Study
  Country: US (occurrence: US)
  Receive Date: 20250910
  Receipt Date: 20250926
  Transmission Date: 20251020
  Serious: Yes (Other)
  Sender: UCB
  Company Number: US-UCBSA-2025055323

PATIENT
  Age: 68 Year
  Sex: Female
  Weight: 61.23 kg

DRUGS (7)
  1. ROTIGOTINE [Suspect]
     Active Substance: ROTIGOTINE
     Indication: Parkinson^s disease
     Dosage: 6 MILLIGRAM, ONCE DAILY (QD)
     Route: 062
     Dates: start: 2016
  2. ROTIGOTINE [Suspect]
     Active Substance: ROTIGOTINE
     Dosage: 6MG PATCH AND CUTTING ANOTHER 6MG PATCH TO EQUAL HER FULL DOSE OF 8MG, ONCE DAILY (QD)
     Route: 062
     Dates: start: 20250828
  3. BACLOFEN [Suspect]
     Active Substance: BACLOFEN
     Indication: Restless legs syndrome
     Dates: end: 20250901
  4. TRAMADOL [Concomitant]
     Active Substance: TRAMADOL
     Indication: Restless legs syndrome
  5. MODAFINIL [Concomitant]
     Active Substance: MODAFINIL
     Indication: Asthenia
  6. BUPROPION HYDROCHLORIDE [Concomitant]
     Active Substance: BUPROPION HYDROCHLORIDE
     Indication: Depression
  7. BUPROPION HYDROCHLORIDE [Concomitant]
     Active Substance: BUPROPION HYDROCHLORIDE
     Indication: Anxiety

REACTIONS (6)
  - Parkinson^s disease [Recovering/Resolving]
  - Restless legs syndrome [Recovered/Resolved]
  - Gait disturbance [Unknown]
  - Fall [Unknown]
  - Treatment noncompliance [Unknown]
  - Wrong technique in product usage process [Unknown]

NARRATIVE: CASE EVENT DATE: 20241001
